FAERS Safety Report 19833341 (Version 1)
Quarter: 2021Q3

REPORT INFORMATION
  Report Type: Spontaneous
  Country: US (occurrence: US)
  Receive Date: 20210915
  Receipt Date: 20210915
  Transmission Date: 20211014
  Serious: Yes (Other)
  Sender: FDA-Public Use
  Company Number: US-ALVOGEN-2021-ALVOGEN-117018

PATIENT
  Age: 39 Year
  Sex: Female
  Weight: 83.9 kg

DRUGS (1)
  1. CLINDAMYCIN. [Suspect]
     Active Substance: CLINDAMYCIN
     Indication: KNEE ARTHROPLASTY
     Route: 042

REACTIONS (2)
  - Drug hypersensitivity [Not Recovered/Not Resolved]
  - Clostridium difficile infection [Not Recovered/Not Resolved]
